FAERS Safety Report 6409150-1 (Version None)
Quarter: 2009Q4

REPORT INFORMATION
  Report Type: 
  Country: None (occurrence: None)
  Receive Date: 20091021
  Receipt Date: 20091010
  Transmission Date: 20100525
  Serious: Yes (Hospitalization)
  Sender: FDA-Public Use
  Company Number: PHEH2009US13484

PATIENT
  Sex: Male

DRUGS (10)
  1. EXJADE [Suspect]
     Indication: MYELODYSPLASTIC SYNDROME
     Dosage: 1375 MG DAILY
     Route: 048
     Dates: start: 20080729, end: 20090916
  2. EXJADE [Suspect]
     Indication: HAEMOCHROMATOSIS
  3. EXJADE [Suspect]
     Indication: SERUM FERRITIN INCREASED
  4. ALLOPURINOL [Concomitant]
     Dosage: UNK, UNK
  5. COREG [Concomitant]
     Dosage: UNK, UNK
  6. SIMVASTATIN [Concomitant]
     Dosage: UNK, UNK
  7. OXYCODONE [Concomitant]
     Dosage: UNK, UNK
  8. FLOMAX [Concomitant]
     Dosage: UNK, UNK
  9. SPIRIVA [Concomitant]
     Dosage: UNK, UNK
  10. VIDAZA [Concomitant]
     Dosage: UNK, UNK

REACTIONS (1)
  - SEPSIS [None]
